FAERS Safety Report 6160798-1 (Version None)
Quarter: 2009Q2

REPORT INFORMATION
  Report Type: 
  Country: None (occurrence: None)
  Receive Date: 20090420
  Receipt Date: 20090416
  Transmission Date: 20091009
  Serious: Yes (Death, Other)
  Sender: FDA-Public Use
  Company Number: PHHY2009IN14264

PATIENT
  Age: 60 Year
  Sex: Male

DRUGS (4)
  1. EXELON [Suspect]
     Indication: DEMENTIA ALZHEIMER'S TYPE
     Dosage: 1 DF, QD
     Route: 062
  2. ELTROXIN [Concomitant]
     Indication: HYPOTHYROIDISM
  3. PERINDOPRIL ERBUMINE [Concomitant]
     Indication: HYPERTENSION
  4. DONEPEZIL HCL [Concomitant]

REACTIONS (2)
  - DEATH [None]
  - DYSPNOEA [None]
